FAERS Safety Report 6633354-6 (Version None)
Quarter: 2010Q1

REPORT INFORMATION
  Report Type: 
  Country: None (occurrence: None)
  Receive Date: 20100312
  Receipt Date: 20100302
  Transmission Date: 20100710
  Serious: Yes (Death)
  Sender: FDA-Public Use
  Company Number: JP-ABBOTT-10P-087-0626449-00

PATIENT
  Age: 76 Year
  Sex: Male

DRUGS (3)
  1. LEUPROLIDE ACETATE [Suspect]
     Indication: PROSTATE CANCER STAGE II
     Route: 058
     Dates: start: 20061228, end: 20070621
  2. BICALUTAMIDE [Suspect]
     Indication: PROSTATE CANCER STAGE II
     Route: 048
     Dates: start: 20070104, end: 20070820
  3. AMLODIPINE [Concomitant]
     Indication: HYPERTENSION
     Route: 048
     Dates: end: 20070831

REACTIONS (2)
  - EMPHYSEMA [None]
  - SMALL CELL LUNG CANCER STAGE UNSPECIFIED [None]
